FAERS Safety Report 7978803 (Version 24)
Quarter: 2016Q3

REPORT INFORMATION
  Report Type: Report from Study
  Country: CA (occurrence: CA)
  Receive Date: 20110607
  Receipt Date: 20160917
  Transmission Date: 20161109
  Serious: Yes (Hospitalization, Other)
  Sender: FDA-Public Use
  Company Number: PHHY2011CA31566

PATIENT
  Age: 52 Year
  Sex: Female

DRUGS (5)
  1. AFINITOR [Suspect]
     Active Substance: EVEROLIMUS
     Dosage: 10 MG, QD
     Route: 048
  2. SANDOSTATIN LAR DEPOT [Suspect]
     Active Substance: OCTREOTIDE ACETATE
     Indication: GLUCAGONOMA
     Dosage: 30 MG, QMO
     Route: 030
     Dates: start: 20080306
  3. PREDNISONE. [Concomitant]
     Active Substance: PREDNISONE
     Indication: PRODUCT USED FOR UNKNOWN INDICATION
     Route: 065
  4. INSULIN [Concomitant]
     Active Substance: INSULIN NOS
     Indication: PRODUCT USED FOR UNKNOWN INDICATION
     Route: 065
  5. AFINITOR [Suspect]
     Active Substance: EVEROLIMUS
     Indication: GLUCAGONOMA
     Dosage: 10 MG, QD
     Route: 048
     Dates: start: 20110627

REACTIONS (24)
  - Underdose [Unknown]
  - Vomiting [Unknown]
  - Wound secretion [Unknown]
  - Blood pressure diastolic decreased [Unknown]
  - Nausea [Unknown]
  - Gastrointestinal neoplasm [Unknown]
  - Intestinal obstruction [Unknown]
  - Abdominal hernia [Unknown]
  - Skin wound [Unknown]
  - Oedema peripheral [Unknown]
  - Heart rate increased [Unknown]
  - Blood pressure systolic increased [Unknown]
  - Product use issue [Unknown]
  - Gastroenteritis viral [Unknown]
  - Procedural pain [Unknown]
  - Syringe issue [Unknown]
  - Renal tubular acidosis [Unknown]
  - Malaise [Unknown]
  - Abdominal pain [Unknown]
  - Pulmonary embolism [Unknown]
  - Hypertension [Unknown]
  - Tachycardia [Unknown]
  - Abdominal pain upper [Unknown]
  - Abdominal distension [Not Recovered/Not Resolved]

NARRATIVE: CASE EVENT DATE: 20110407
